FAERS Safety Report 12400858 (Version 1)
Quarter: 2016Q2

REPORT INFORMATION
  Report Type: Spontaneous
  Country: US (occurrence: None)
  Receive Date: 20160524
  Receipt Date: 20160524
  Transmission Date: 20160815
  Serious: No
  Sender: FDA-Public Use
  Company Number: None

PATIENT
  Sex: Female

DRUGS (8)
  1. PLAQUENIL [Concomitant]
     Active Substance: HYDROXYCHLOROQUINE SULFATE
  2. ENBREL [Suspect]
     Active Substance: ETANERCEPT
     Indication: RHEUMATOID ARTHRITIS
     Route: 058
     Dates: start: 20160302
  3. DIAZEPAM. [Concomitant]
     Active Substance: DIAZEPAM
  4. PRENATAL [Concomitant]
     Active Substance: VITAMINS
  5. VICODIN [Concomitant]
     Active Substance: ACETAMINOPHEN\HYDROCODONE BITARTRATE
  6. LEFLUNOMIDE. [Concomitant]
     Active Substance: LEFLUNOMIDE
  7. MORPHINE [Concomitant]
     Active Substance: MORPHINE
  8. LEVOTHYRO [Concomitant]

REACTIONS (4)
  - Autoimmune disorder [None]
  - Drug dose omission [None]
  - Fibromyalgia [None]
  - Road traffic accident [None]

NARRATIVE: CASE EVENT DATE: 2016
